FAERS Safety Report 5009439-7 (Version None)
Quarter: 2006Q2

REPORT INFORMATION
  Report Type: 
  Country: None (occurrence: None)
  Receive Date: 20060524
  Receipt Date: 20060515
  Transmission Date: 20061013
  Serious: Yes (Other)
  Sender: FDA-Public Use
  Company Number: PHBS2006CA07337

PATIENT
  Age: 24 Year
  Sex: Female

DRUGS (2)
  1. LETROZOLE [Suspect]
     Indication: INFERTILITY
     Dosage: 5 MG/D FOR 5 D FROM D 3 TO 7 OF THE CYCLE
     Route: 065
  2. METFORMIN [Suspect]
     Route: 065

REACTIONS (2)
  - DRUG EXPOSURE BEFORE PREGNANCY [None]
  - GESTATIONAL DIABETES [None]
